FAERS Safety Report 10888488 (Version 1)
Quarter: 2015Q1

REPORT INFORMATION
  Report Type: Spontaneous
  Country: US (occurrence: US)
  Receive Date: 20150305
  Receipt Date: 20150305
  Transmission Date: 20150721
  Serious: Yes (Death, Other)
  Sender: FDA-Public Use
  Company Number: US-ASTRAZENECA-2013SE50106

PATIENT
  Age: 22423 Day
  Sex: Male

DRUGS (8)
  1. FOSINOPRIL [Concomitant]
     Active Substance: FOSINOPRIL
  2. ACTOS [Concomitant]
     Active Substance: PIOGLITAZONE HYDROCHLORIDE
  3. BYETTA [Suspect]
     Active Substance: EXENATIDE
     Indication: TYPE 2 DIABETES MELLITUS
     Route: 065
     Dates: start: 20071119, end: 20080708
  4. SPIRONOLACTON [Concomitant]
     Active Substance: SPIRONOLACTONE
  5. JANUVIA [Suspect]
     Active Substance: SITAGLIPTIN PHOSPHATE
     Route: 065
     Dates: start: 20081205, end: 200902
  6. TARCEVA [Concomitant]
     Active Substance: ERLOTINIB HYDROCHLORIDE
  7. OXYCODONE [Concomitant]
     Active Substance: OXYCODONE
  8. AMLODIPIN [Concomitant]
     Active Substance: AMLODIPINE BESYLATE

REACTIONS (5)
  - Metastases to liver [Unknown]
  - Splenomegaly [Unknown]
  - Pancreatic carcinoma [Fatal]
  - Ascites [Unknown]
  - Portal hypertension [Unknown]

NARRATIVE: CASE EVENT DATE: 20090223
